FAERS Safety Report 20456845 (Version 1)
Quarter: 2022Q1

REPORT INFORMATION
  Report Type: Spontaneous
  Country: US (occurrence: US)
  Receive Date: 20220210
  Receipt Date: 20220210
  Transmission Date: 20220423
  Serious: No
  Sender: FDA-Public Use
  Company Number: US-PERRIGO-21US001536

PATIENT
  Age: 62 Year
  Sex: Male
  Weight: 74.83 kg

DRUGS (2)
  1. CETIRIZINE HYDROCHLORIDE [Suspect]
     Active Substance: CETIRIZINE HYDROCHLORIDE
     Indication: Rash
     Dosage: 10 MG, TID
     Route: 048
     Dates: start: 202010, end: 202010
  2. CETIRIZINE HYDROCHLORIDE [Suspect]
     Active Substance: CETIRIZINE HYDROCHLORIDE
     Indication: Eczema
     Dosage: 10 MG, TID
     Route: 048
     Dates: start: 202010

REACTIONS (3)
  - Drug ineffective for unapproved indication [Recovered/Resolved]
  - Therapeutic response unexpected [Unknown]
  - Overdose [Not Recovered/Not Resolved]

NARRATIVE: CASE EVENT DATE: 20201001
